FAERS Safety Report 7502470-9 (Version None)
Quarter: 2011Q2

REPORT INFORMATION
  Report Type: 
  Country: None (occurrence: None)
  Receive Date: 20110525
  Receipt Date: 20110520
  Transmission Date: 20111010
  Serious: Yes (Death, Life-Threatening, Hospitalization, Other)
  Sender: FDA-Public Use
  Company Number: US-BRISTOL-MYERS SQUIBB COMPANY-15274251

PATIENT
  Age: 57 Year
  Sex: Male

DRUGS (14)
  1. SOLU-MEDROL [Concomitant]
     Route: 042
     Dates: start: 20100903, end: 20100909
  2. VFEND [Concomitant]
     Dates: start: 20101007, end: 20101017
  3. DEXAMETHASONE [Concomitant]
     Dates: start: 20100910, end: 20101021
  4. AMPICILLIN SODIUM [Concomitant]
     Dates: start: 20101013, end: 20101021
  5. IMODIUM [Concomitant]
  6. MICAFUNGIN SODIUM [Concomitant]
     Dates: start: 20101009, end: 20101019
  7. PREDNISONE [Concomitant]
     Route: 048
     Dates: start: 20100909
  8. DORIPENEM MONOHYDRATE [Concomitant]
     Dates: start: 20101001, end: 20101010
  9. IPRATROPIUM BROMIDE AND ALBUTEROL SULFATE [Concomitant]
     Dates: start: 20100930, end: 20101021
  10. ACYCLOVIR [Concomitant]
     Dates: start: 20101005, end: 20101015
  11. TIGECYCLINE [Concomitant]
     Dates: start: 20100929, end: 20101009
  12. AMPHOTERICIN B [Concomitant]
     Dates: start: 20101016, end: 20101021
  13. IPILIMUMAB [Suspect]
     Indication: MALIGNANT MELANOMA
     Dosage: INTRRUPTED ON 03SEP2010,DOSAGE:323MG
     Route: 042
     Dates: start: 20100723, end: 20100903
  14. LOMOTIL [Concomitant]
     Dosage: 1DF=2.5/0.025MG
     Dates: start: 20100826

REACTIONS (4)
  - NERVOUS SYSTEM DISORDER [None]
  - DIARRHOEA [None]
  - PNEUMONITIS [None]
  - CEREBRAL HAEMORRHAGE [None]
